FAERS Safety Report 17942648 (Version 1)
Quarter: 2020Q2

REPORT INFORMATION
  Report Type: Spontaneous
  Country: DE (occurrence: DE)
  Receive Date: 20200625
  Receipt Date: 20200625
  Transmission Date: 20200714
  Serious: Yes (Hospitalization)
  Sender: FDA-Public Use
  Company Number: DE-TEVA-2020-DE-1790584

PATIENT
  Age: 77 Year
  Sex: Male

DRUGS (15)
  1. CLOPIDOGREL [Suspect]
     Active Substance: CLOPIDOGREL BISULFATE
     Dosage: 75 MILLIGRAM DAILY;  1-0-0-0,
     Route: 048
  2. PREDNISOLONE. [Interacting]
     Active Substance: PREDNISOLONE
     Dosage: 5 MILLIGRAM DAILY;  1-0-0-0,
     Route: 048
  3. MIRCERA 75MG [Concomitant]
     Dosage: 75 U / 2 WEEKS, 1-0-0-0
  4. XIPAMID [Concomitant]
     Active Substance: XIPAMIDE
     Dosage: 5 MILLIGRAM DAILY;  1-0-0-0,
     Route: 048
  5. ACETYLSALICYLSAEURE [Interacting]
     Active Substance: ASPIRIN
     Dosage: 100 MILLIGRAM DAILY;  0-1-0-0,
     Route: 048
  6. RAMIPRIL. [Concomitant]
     Active Substance: RAMIPRIL
     Dosage: 2.5 MILLIGRAM DAILY;  1-0-0-0,
     Route: 048
  7. PANTOPRAZOL [Concomitant]
     Active Substance: PANTOPRAZOLE SODIUM
     Dosage: 80 MILLIGRAM DAILY; 1-0-1-0,
     Route: 048
  8. PREGABALIN. [Concomitant]
     Active Substance: PREGABALIN
     Dosage: 75 MILLIGRAM DAILY; 1-0-0-0,
     Route: 048
  9. TROSPIUM [Concomitant]
     Active Substance: TROSPIUM
     Dosage: 30 MILLIGRAM DAILY;  1-0-0-0
  10. FEBUXOSTAT. [Concomitant]
     Active Substance: FEBUXOSTAT
     Dosage: 80 MILLIGRAM DAILY; 1-0-0-0,
     Route: 048
  11. TAMSULOSIN [Concomitant]
     Active Substance: TAMSULOSIN
     Dosage: .4 MILLIGRAM DAILY; 0-0-1-0,
     Route: 048
  12. CARVEDILOL. [Concomitant]
     Active Substance: CARVEDILOL
     Dosage: 50 MILLIGRAM DAILY; 1-0-1-0,
     Route: 048
  13. SIMVASTATIN. [Concomitant]
     Active Substance: SIMVASTATIN
     Dosage: 20 MILLIGRAM DAILY; 0-0-1-0,
     Route: 048
  14. TORASEMID [Concomitant]
     Active Substance: TORSEMIDE
     Dosage: .5 DOSAGE FORMS DAILY;  0.5-0-0-0,
     Route: 048
  15. METAMIZOL [Concomitant]
     Active Substance: METAMIZOLE SODIUM
     Dosage: 500 MG, AS NEEDED,
     Route: 048

REACTIONS (7)
  - Epistaxis [Unknown]
  - Labelled drug-drug interaction medication error [Unknown]
  - Pallor [Unknown]
  - Haematoma [Unknown]
  - Post procedural haemorrhage [Unknown]
  - General physical health deterioration [Unknown]
  - Haematochezia [Unknown]
